FAERS Safety Report 10713305 (Version 2)
Quarter: 2015Q1

REPORT INFORMATION
  Report Type: Spontaneous
  Country: US (occurrence: US)
  Receive Date: 20150115
  Receipt Date: 20150120
  Transmission Date: 20150721
  Serious: Yes (Death)
  Sender: FDA-Public Use
  Company Number: US-PFIZER INC-2015016876

PATIENT
  Age: 38 Year
  Sex: Male
  Weight: 118 kg

DRUGS (11)
  1. LYRICA [Suspect]
     Active Substance: PREGABALIN
     Indication: NEURALGIA
     Dosage: 75 MG, 3X/DAY
     Route: 048
     Dates: start: 2014
  2. FLUOXETINE [Concomitant]
     Active Substance: FLUOXETINE\FLUOXETINE HYDROCHLORIDE
     Dosage: 20 MG TWO CAPSULES EVERY MORNING
  3. PROZAC [Concomitant]
     Active Substance: FLUOXETINE HYDROCHLORIDE
  4. PRAVASTATIN [Concomitant]
     Active Substance: PRAVASTATIN\PRAVASTATIN SODIUM
     Indication: BLOOD CHOLESTEROL INCREASED
     Dosage: 10 MG, DAILY
  5. TEMAZEPAM. [Concomitant]
     Active Substance: TEMAZEPAM
     Indication: INSOMNIA
     Dosage: 30 MG CAPSULES AS NEEDED AT BEDTIME
  6. HYDROCODONE/ACETAMINOPHEN [Concomitant]
     Active Substance: ACETAMINOPHEN\HYDROCODONE
     Indication: PAIN
     Dosage: 7.5/325 MG 1 EVERY 12 HOURS OR 2 A DAY AS NEEDED
  7. SEROQUEL [Concomitant]
     Active Substance: QUETIAPINE FUMARATE
     Indication: SCHIZOPHRENIA
     Dosage: 300 MG ONE AND ONE HALF TABLET EVERY EVENING
  8. HYDROCODONE [Suspect]
     Active Substance: HYDROCODONE
     Indication: BACK PAIN
     Dosage: 100 MG, EVERY 12 HOURS
  9. LISINOPRIL. [Concomitant]
     Active Substance: LISINOPRIL
     Indication: HYPERTENSION
     Dosage: 20 MG, DAILY
  10. CLONAZEPAM. [Suspect]
     Active Substance: CLONAZEPAM
     Indication: ANXIETY
     Dosage: 1 MG ONE HALF TO ONE TABLET EVERY 24HOURS, AS NEEDED
     Dates: start: 20150101
  11. METHOCARBAMOL. [Concomitant]
     Active Substance: METHOCARBAMOL
     Indication: MUSCLE SPASMS
     Dosage: 750 MG,TWICE A DAY AS NEEDED

REACTIONS (7)
  - Anxiety [Unknown]
  - Condition aggravated [Not Recovered/Not Resolved]
  - Back pain [Not Recovered/Not Resolved]
  - Frustration [Unknown]
  - Accidental overdose [Fatal]
  - Intentional product use issue [Not Recovered/Not Resolved]
  - Somnolence [Unknown]

NARRATIVE: CASE EVENT DATE: 201412
